FAERS Safety Report 12394903 (Version 1)
Quarter: 2016Q2

REPORT INFORMATION
  Report Type: Spontaneous
  Country: GB (occurrence: GB)
  Receive Date: 20160523
  Receipt Date: 20160523
  Transmission Date: 20160815
  Serious: Yes (Hospitalization)
  Sender: FDA-Public Use
  Company Number: GB-TEVA-660533ACC

PATIENT
  Age: 8 Year
  Sex: Male
  Weight: 32.8 kg

DRUGS (5)
  1. ATENOLOL. [Concomitant]
     Active Substance: ATENOLOL
  2. EPOETIN ALFA HEXEL [Concomitant]
  3. AMLODIPINE [Suspect]
     Active Substance: AMLODIPINE BESYLATE
     Indication: HYPERTENSION
     Dosage: 10 MILLIGRAM DAILY;
  4. AMLODIPINE [Suspect]
     Active Substance: AMLODIPINE BESYLATE
     Dosage: 20 MILLIGRAM DAILY;
     Dates: start: 20160327, end: 20160427
  5. ALFACALCIDOL [Concomitant]
     Active Substance: ALFACALCIDOL

REACTIONS (8)
  - Oedema peripheral [Unknown]
  - Pericardial effusion [Unknown]
  - Pleural effusion [Unknown]
  - Cardiac failure [Recovering/Resolving]
  - Dyspnoea [Unknown]
  - Hepatomegaly [Unknown]
  - Cardiomegaly [Unknown]
  - Dilatation ventricular [Unknown]

NARRATIVE: CASE EVENT DATE: 20160427
